FAERS Safety Report 8839965 (Version 1)
Quarter: 2012Q4

REPORT INFORMATION
  Report Type: Spontaneous
  Country: US (occurrence: None)
  Receive Date: 20121012
  Receipt Date: 20121012
  Transmission Date: 20130627
  Serious: Yes (Hospitalization)
  Sender: FDA-Public Use
  Company Number: None

PATIENT
  Age: 55 Year
  Sex: Female
  Weight: 68 kg

DRUGS (2)
  1. CAPECITABINE [Suspect]
     Indication: METASTATIC BREAST CANCER
     Dates: start: 20120801, end: 20121004
  2. DOCETAXEL [Suspect]
     Dates: start: 20120601, end: 20120801

REACTIONS (4)
  - Palmar-plantar erythrodysaesthesia syndrome [None]
  - Skin exfoliation [None]
  - Conjunctivitis [None]
  - Hypopyon [None]
